FAERS Safety Report 21967433 (Version 2)
Quarter: 2023Q1

REPORT INFORMATION
  Report Type: Spontaneous
  Country: DK (occurrence: DK)
  Receive Date: 20230208
  Receipt Date: 20230215
  Transmission Date: 20230418
  Serious: Yes (Life-Threatening, Hospitalization, Other)
  Sender: FDA-Public Use
  Company Number: DK-PFIZER INC-PV202300023887

PATIENT
  Age: 40 Year
  Sex: Female
  Weight: 86 kg

DRUGS (3)
  1. INFLIXIMAB [Suspect]
     Active Substance: INFLIXIMAB
     Indication: Psoriasis
     Dosage: 500 MG, 5 WEEKS, 1.667 MG/ML NACL SOLUTION) (THE LAST DOSAGE WAS ADMINISTERED ON 15 NOV 2022)
     Route: 042
     Dates: start: 20170606, end: 20221205
  2. BIMEKIZUMAB [Suspect]
     Active Substance: BIMEKIZUMAB
     Indication: Psoriasis
     Dosage: 320 MG, 4 WEEKS
     Route: 058
     Dates: start: 20221212
  3. LEVOTHYROXINE [Concomitant]
     Active Substance: LEVOTHYROXINE
     Dosage: UNK
     Dates: start: 20210525

REACTIONS (5)
  - Abscess jaw [Recovering/Resolving]
  - Toothache [Unknown]
  - Infection [Recovering/Resolving]
  - Off label use [Unknown]
  - Off label use [Unknown]

NARRATIVE: CASE EVENT DATE: 20170606
